FAERS Safety Report 4640605-6 (Version None)
Quarter: 2005Q2

REPORT INFORMATION
  Report Type: 
  Country: None (occurrence: None)
  Receive Date: 20050419
  Receipt Date: 20050407
  Transmission Date: 20051028
  Serious: No
  Sender: FDA-Public Use
  Company Number: 2005GB00413

PATIENT
  Age: 37 Year
  Sex: Female

DRUGS (8)
  1. SEROQUEL [Suspect]
     Indication: MAJOR DEPRESSION
     Dosage: 200 MG DAILY PO
     Route: 048
     Dates: start: 20050214
  2. VENLAFAXINE HCL [Suspect]
     Indication: DEPRESSION
     Dosage: 225 MG DAILY PO
     Route: 048
     Dates: start: 20050101, end: 20050310
  3. MIRTAZAPINE [Suspect]
  4. CODEINE [Concomitant]
  5. ACETAMINOPHEN [Suspect]
     Indication: DEPRESSION
     Dates: start: 20050101
  6. DICLOFENAC SODIUM [Concomitant]
  7. BISACODYL [Concomitant]
  8. DIAZEPAM [Concomitant]

REACTIONS (3)
  - MAJOR DEPRESSION [None]
  - MYDRIASIS [None]
  - VISUAL DISTURBANCE [None]
